FAERS Safety Report 12776324 (Version 1)
Quarter: 2016Q3

REPORT INFORMATION
  Report Type: Spontaneous
  Country: US (occurrence: US)
  Receive Date: 20160923
  Receipt Date: 20160923
  Transmission Date: 20161109
  Serious: No
  Sender: FDA-Public Use
  Company Number: US-LUNDBECK-DKLU2018611

PATIENT
  Sex: Male

DRUGS (1)
  1. SABRIL [Suspect]
     Active Substance: VIGABATRIN
     Indication: ENCEPHALOPATHY
     Route: 048
     Dates: start: 20160626

REACTIONS (1)
  - Drug ineffective [Unknown]
